FAERS Safety Report 5782552-2 (Version None)
Quarter: 2008Q2

REPORT INFORMATION
  Report Type: 
  Country: None (occurrence: None)
  Receive Date: 20080623
  Receipt Date: 20080611
  Transmission Date: 20081010
  Serious: Yes (Other)
  Sender: FDA-Public Use
  Company Number: CA-PFIZER INC-2008049382

PATIENT
  Age: 43 Year
  Sex: Male

DRUGS (3)
  1. CHANTIX [Suspect]
  2. ANXIOLYTICS [Concomitant]
  3. ANTIDEPRESSANTS [Concomitant]

REACTIONS (5)
  - ABNORMAL DREAMS [None]
  - ANGER [None]
  - DEPRESSION [None]
  - IMPATIENCE [None]
  - NAUSEA [None]
